FAERS Safety Report 5745568-8 (Version None)
Quarter: 2008Q2

REPORT INFORMATION
  Report Type: 
  Country: None (occurrence: None)
  Receive Date: 20080521
  Receipt Date: 20080509
  Transmission Date: 20081010
  Serious: Yes (Other)
  Sender: FDA-Public Use
  Company Number: DE-PFIZER INC-2008034542

PATIENT
  Sex: Female
  Weight: 61 kg

DRUGS (6)
  1. ZELDOX (CAPSULES) [Suspect]
     Indication: SCHIZOPHRENIA
     Route: 048
  2. MELOXICAM [Concomitant]
     Route: 048
  3. NOCTAMID [Concomitant]
     Route: 048
  4. CLORAZEPATE DIPOTASSIUM [Concomitant]
  5. DOMINAL FORTE [Concomitant]
     Route: 048
  6. CONTRACEPTIVE, UNSPECIFIED [Concomitant]

REACTIONS (2)
  - CORNEAL DISORDER [None]
  - VISUAL ACUITY REDUCED [None]
